FAERS Safety Report 6842294-9 (Version None)
Quarter: 2010Q3

REPORT INFORMATION
  Report Type: 
  Country: None (occurrence: None)
  Receive Date: 20100714
  Receipt Date: 20070723
  Transmission Date: 20110219
  Serious: No
  Sender: FDA-Public Use
  Company Number: US-PFIZER INC-2007062555

PATIENT
  Sex: Male

DRUGS (3)
  1. CHANTIX [Suspect]
     Indication: SMOKING CESSATION THERAPY
     Dates: start: 20070601, end: 20070601
  2. VASOTEC [Suspect]
     Indication: HYPERTENSION
     Dates: end: 20070601
  3. CHOLESTEROL- AND TRIGLYCERIDE REDUCERS [Suspect]
     Indication: BLOOD CHOLESTEROL INCREASED
     Dates: end: 20070601

REACTIONS (1)
  - ABDOMINAL PAIN UPPER [None]
